FAERS Safety Report 6492774-3 (Version None)
Quarter: 2009Q4

REPORT INFORMATION
  Report Type: 
  Country: None (occurrence: None)
  Receive Date: 20091214
  Receipt Date: 20091203
  Transmission Date: 20100525
  Serious: Yes (Other)
  Sender: FDA-Public Use
  Company Number: BR-PFIZER INC-2009235790

PATIENT
  Age: 49 Year
  Sex: Female
  Weight: 82 kg

DRUGS (2)
  1. CHAMPIX [Suspect]
     Dosage: UNK
     Route: 048
     Dates: start: 20080501
  2. SYNTHROID [Concomitant]
     Indication: HYPOTHYROIDISM
     Dosage: UNK

REACTIONS (4)
  - ANXIETY [None]
  - NAUSEA [None]
  - OBESITY SURGERY [None]
  - PANIC DISORDER [None]
